FAERS Safety Report 4692701-5 (Version None)
Quarter: 2005Q2

REPORT INFORMATION
  Report Type: 
  Country: None (occurrence: None)
  Receive Date: 20050617
  Receipt Date: 20050602
  Transmission Date: 20051028
  Serious: Yes (Death, Hospitalization)
  Sender: FDA-Public Use
  Company Number: TR-MERCK-0506USA02102

PATIENT
  Age: 63 Year
  Sex: Female

DRUGS (5)
  1. VIOXX [Suspect]
     Indication: MUSCULOSKELETAL PAIN
     Route: 048
     Dates: start: 20021003
  2. VIOXX [Suspect]
     Route: 048
     Dates: start: 20030806
  3. VIOXX [Suspect]
     Route: 048
     Dates: start: 20030916
  4. VIOXX [Suspect]
     Route: 048
     Dates: start: 20031015
  5. VIOXX [Suspect]
     Route: 048
     Dates: start: 20031117

REACTIONS (1)
  - MYOCARDIAL INFARCTION [None]
